FAERS Safety Report 12859956 (Version 1)
Quarter: 2016Q4

REPORT INFORMATION
  Report Type: Spontaneous
  Country: US (occurrence: US)
  Receive Date: 20161018
  Receipt Date: 20161018
  Transmission Date: 20170207
  Serious: Yes (Other)
  Sender: FDA-Public Use
  Company Number: US-ROCHE-1842486

PATIENT
  Age: 72 Year
  Sex: Male

DRUGS (1)
  1. RITUXAN [Suspect]
     Active Substance: RITUXIMAB
     Indication: NON-HODGKIN^S LYMPHOMA
     Dosage: EVERY 3 MONTHS
     Route: 042
     Dates: start: 201406

REACTIONS (8)
  - Vasodilatation [Not Recovered/Not Resolved]
  - Sensory disturbance [Recovered/Resolved]
  - Blood pressure decreased [Recovered/Resolved]
  - Nasopharyngitis [Recovered/Resolved]
  - Pyrexia [Recovered/Resolved]
  - Thrombosis [Recovered/Resolved with Sequelae]
  - Rash [Not Recovered/Not Resolved]
  - Pruritus [Unknown]

NARRATIVE: CASE EVENT DATE: 201406
